FAERS Safety Report 6946089-7 (Version None)
Quarter: 2010Q3

REPORT INFORMATION
  Report Type: 
  Country: None (occurrence: None)
  Receive Date: 20100824
  Receipt Date: 20100810
  Transmission Date: 20110219
  Serious: Yes (Life-Threatening, Hospitalization)
  Sender: FDA-Public Use
  Company Number: 2010MA001644

PATIENT
  Age: 8 Year
  Sex: Male

DRUGS (4)
  1. PHENOBARBITAL TAB [Suspect]
     Indication: EPILEPSY
     Dosage: 20 MG/KG; X1; PO
     Route: 048
     Dates: start: 20100709, end: 20100709
  2. TOPIRAMATE [Concomitant]
  3. VALPROIC ACID [Concomitant]
  4. CLOBAZAM [Concomitant]

REACTIONS (2)
  - COMA [None]
  - PNEUMONIA ASPIRATION [None]
